FAERS Safety Report 24900966 (Version 2)
Quarter: 2025Q1

REPORT INFORMATION
  Report Type: Spontaneous
  Country: US (occurrence: US)
  Receive Date: 20250129
  Receipt Date: 20250203
  Transmission Date: 20250409
  Serious: Yes (Hospitalization, Other)
  Sender: PFIZER
  Company Number: US-PFIZER INC-202500018222

PATIENT
  Age: 75 Year
  Sex: Male

DRUGS (3)
  1. PACLITAXEL [Suspect]
     Active Substance: PACLITAXEL
     Indication: Lung carcinoma cell type unspecified stage IV
  2. KEYTRUDA [Suspect]
     Active Substance: PEMBROLIZUMAB
     Indication: Lung carcinoma cell type unspecified stage IV
  3. BENADRYL [Suspect]
     Active Substance: DIPHENHYDRAMINE HYDROCHLORIDE

REACTIONS (14)
  - Myocardial infarction [Unknown]
  - Thrombosis [Unknown]
  - Drug hypersensitivity [Unknown]
  - Feeling of body temperature change [Unknown]
  - Influenza [Unknown]
  - Diarrhoea [Not Recovered/Not Resolved]
  - Weight decreased [Unknown]
  - Taste disorder [Unknown]
  - Eating disorder [Unknown]
  - Thirst [Unknown]
  - Enteritis [Unknown]
  - Duodenitis [Unknown]
  - Asthenia [Not Recovered/Not Resolved]
  - Neoplasm progression [Unknown]
